FAERS Safety Report 4666949-X (Version None)
Quarter: 2005Q2

REPORT INFORMATION
  Report Type: 
  Country: None (occurrence: None)
  Receive Date: 20050518
  Receipt Date: 20040709
  Transmission Date: 20051028
  Serious: Yes (Other)
  Sender: FDA-Public Use
  Company Number: 2004208943US

PATIENT
  Sex: Female

DRUGS (3)
  1. DEPO-PROVERA [Suspect]
     Indication: CONTRACEPTION
     Dosage: 1ST INJECTION
     Dates: start: 20030901, end: 20030901
  2. DEPO-PROVERA [Suspect]
     Dosage: LAST INJECTION
     Dates: start: 20040311, end: 20040311
  3. DEPO-PROVERA [Suspect]
     Dosage: 2ND INJECTION
     Dates: start: 20031219, end: 20031219

REACTIONS (1)
  - UNINTENDED PREGNANCY [None]
